FAERS Safety Report 10433738 (Version 5)
Quarter: 2015Q4

REPORT INFORMATION
  Report Type: Report from Study
  Country: US (occurrence: US)
  Receive Date: 20140905
  Receipt Date: 20151123
  Transmission Date: 20160304
  Serious: Yes (Other)
  Sender: FDA-Public Use
  Company Number: US-SANOFI-AVENTIS-2013SA039347

PATIENT
  Age: 52 Year
  Sex: Female

DRUGS (4)
  1. AUBAGIO [Suspect]
     Active Substance: TERIFLUNOMIDE
     Indication: MULTIPLE SCLEROSIS
     Route: 048
  2. AUBAGIO [Suspect]
     Active Substance: TERIFLUNOMIDE
     Indication: MULTIPLE SCLEROSIS
     Route: 048
     Dates: start: 20130222, end: 20141231
  3. AUBAGIO [Suspect]
     Active Substance: TERIFLUNOMIDE
     Indication: MULTIPLE SCLEROSIS
     Route: 048
     Dates: start: 20150301
  4. AUBAGIO [Suspect]
     Active Substance: TERIFLUNOMIDE
     Indication: MULTIPLE SCLEROSIS
     Route: 048
     Dates: end: 20151014

REACTIONS (29)
  - Multiple sclerosis relapse [Unknown]
  - Visual impairment [Unknown]
  - Neutrophil count increased [Not Recovered/Not Resolved]
  - CD4 lymphocytes decreased [Not Recovered/Not Resolved]
  - Upper respiratory tract infection [Recovering/Resolving]
  - White blood cell count increased [Unknown]
  - Urinary tract infection [Unknown]
  - Stomatitis [Unknown]
  - Insomnia [Not Recovered/Not Resolved]
  - Balance disorder [Not Recovered/Not Resolved]
  - Respiratory disorder [Not Recovered/Not Resolved]
  - Gingivitis [Recovering/Resolving]
  - Hyperhidrosis [Not Recovered/Not Resolved]
  - Influenza [Recovering/Resolving]
  - Muscle spasticity [Not Recovered/Not Resolved]
  - Unevaluable event [Unknown]
  - Gait disturbance [Unknown]
  - Pyrexia [Recovering/Resolving]
  - Drug dose omission [Unknown]
  - Memory impairment [Unknown]
  - T-lymphocyte count decreased [Not Recovered/Not Resolved]
  - Oral infection [Unknown]
  - Fatigue [Not Recovered/Not Resolved]
  - Cough [Not Recovered/Not Resolved]
  - Central nervous system lesion [Unknown]
  - Gastroenteritis viral [Unknown]
  - Reflexes abnormal [Not Recovered/Not Resolved]
  - Nasopharyngitis [Unknown]
  - Hypoaesthesia [Unknown]

NARRATIVE: CASE EVENT DATE: 201509
